FAERS Safety Report 5081654-6 (Version None)
Quarter: 2006Q3

REPORT INFORMATION
  Report Type: 
  Country: None (occurrence: None)
  Receive Date: 20060811
  Receipt Date: 20060726
  Transmission Date: 20061208
  Serious: Yes (Hospitalization, Other)
  Sender: FDA-Public Use
  Company Number: DSA_28550_2006

PATIENT
  Age: 76 Year
  Sex: Male

DRUGS (8)
  1. ENALAPRIL MALEATE [Suspect]
     Indication: HYPERTENSION
     Dosage: 10 MG Q DAY
     Dates: start: 20021101
  2. ENALAPRIL MALEATE [Suspect]
     Indication: HYPERTENSION
     Dosage: 20 MG QD DAY; A FEW YEARS
     Dates: end: 20021101
  3. AREJIN [Suspect]
     Indication: RHINITIS ALLERGIC
     Dosage: 200 MG Q DAY; A FEW YEARS
     Dates: end: 20040101
  4. DAJOKANZO-RO [Suspect]
     Indication: CONSTIPATION
     Dosage: 240 MG Q DAY
     Dates: start: 20040101, end: 20040101
  5. NIFEDIPINE [Concomitant]
  6. FAMOTIDINE [Concomitant]
  7. BROTIZOLAM [Concomitant]
  8. TERAZOSIN HCL [Concomitant]

REACTIONS (20)
  - ANAEMIA [None]
  - BLOOD CREATINE PHOSPHOKINASE INCREASED [None]
  - BOWEL SOUNDS ABNORMAL [None]
  - BRADYCARDIA [None]
  - CARDIAC MURMUR [None]
  - CARDIOMEGALY [None]
  - CONSTIPATION [None]
  - ELECTROCARDIOGRAM T WAVE AMPLITUDE DECREASED [None]
  - HEART RATE IRREGULAR [None]
  - HEART SOUNDS ABNORMAL [None]
  - HEPATIC FUNCTION ABNORMAL [None]
  - HYPERTENSION [None]
  - HYPOCHLORAEMIA [None]
  - HYPOKALAEMIA [None]
  - INTESTINAL DILATATION [None]
  - METABOLIC ALKALOSIS [None]
  - MUSCULAR WEAKNESS [None]
  - OVERDOSE [None]
  - PSEUDOALDOSTERONISM [None]
  - RENIN DECREASED [None]
